FAERS Safety Report 17668950 (Version 1)
Quarter: 2020Q2

REPORT INFORMATION
  Report Type: Spontaneous
  Country: US (occurrence: US)
  Receive Date: 20200415
  Receipt Date: 20200415
  Transmission Date: 20200713
  Serious: Yes (Other)
  Sender: FDA-Public Use
  Company Number: US-GLAXOSMITHKLINE-US2020063923

PATIENT
  Sex: Female

DRUGS (1)
  1. BENLYSTA [Suspect]
     Active Substance: BELIMUMAB
     Indication: PRODUCT USED FOR UNKNOWN INDICATION
     Dosage: UNK
     Route: 065
     Dates: end: 20191215

REACTIONS (10)
  - Ill-defined disorder [Unknown]
  - Thyroid mass [Unknown]
  - Blood immunoglobulin G increased [Unknown]
  - Osteoarthritis [Unknown]
  - Blood immunoglobulin A increased [Unknown]
  - Immunodeficiency common variable [Unknown]
  - Streptococcal infection [Unknown]
  - Influenza [Unknown]
  - Rheumatoid arthritis [Unknown]
  - Goitre [Unknown]

NARRATIVE: CASE EVENT DATE: 2018
